FAERS Safety Report 8152763-X (Version None)
Quarter: 2012Q1

REPORT INFORMATION
  Report Type: 
  Country: None (occurrence: None)
  Receive Date: 20120221
  Receipt Date: 20120207
  Transmission Date: 20120608
  Serious: Yes (Hospitalization, Other)
  Sender: FDA-Public Use
  Company Number: US-MYLANLABS-2012S1003350

PATIENT
  Age: 7 Decade
  Sex: Male
  Weight: 87.09 kg

DRUGS (29)
  1. CARDIZEM [Concomitant]
  2. LOVENOX [Concomitant]
  3. MULTI-VITAMIN [Concomitant]
  4. COLACE [Concomitant]
  5. ACETAMINOPHEN [Concomitant]
  6. MEDROL [Concomitant]
  7. LASIX [Concomitant]
  8. ALPHAGAN [Concomitant]
  9. ALDACTONE [Concomitant]
  10. DIGOXIN [Suspect]
     Route: 048
     Dates: start: 20020204, end: 20080422
  11. COSOPT [Concomitant]
  12. LORTAB [Concomitant]
     Dosage: 2.5/500MG
  13. COREG [Concomitant]
  14. NITROGLYCERIN [Concomitant]
  15. LOPID [Concomitant]
  16. BENICAR [Concomitant]
  17. LEVAQUIN [Concomitant]
  18. ASPIRIN [Concomitant]
  19. PERCOCET [Concomitant]
  20. COUMADIN [Concomitant]
  21. ZESTRIL [Concomitant]
  22. SEREVENT [Concomitant]
     Dosage: DISKUS
     Route: 055
  23. MONOPRIL [Concomitant]
  24. IMDUR [Concomitant]
  25. MICRO-K [Concomitant]
  26. ZOCOR [Concomitant]
  27. DEMADEX [Concomitant]
  28. TOBRA /00304201/ [Concomitant]
  29. LOPRESSOR [Concomitant]

REACTIONS (97)
  - ACUTE PULMONARY OEDEMA [None]
  - ANGINA PECTORIS [None]
  - CARDIAC FAILURE CONGESTIVE [None]
  - BRONCHIECTASIS [None]
  - DYSLIPIDAEMIA [None]
  - ELECTROCARDIOGRAM POOR R-WAVE PROGRESSION [None]
  - LEFT VENTRICULAR HYPERTROPHY [None]
  - PRODUCTIVE COUGH [None]
  - RED BLOOD CELL SEDIMENTATION RATE INCREASED [None]
  - SCAN MYOCARDIAL PERFUSION ABNORMAL [None]
  - WEIGHT INCREASED [None]
  - PALPITATIONS [None]
  - CORONARY ARTERY DISEASE [None]
  - MITRAL VALVE REPLACEMENT [None]
  - ACTIVITIES OF DAILY LIVING IMPAIRED [None]
  - ANXIETY [None]
  - BLOOD TEST ABNORMAL [None]
  - CATHETERISATION CARDIAC ABNORMAL [None]
  - CHRONIC GRANULOMATOUS DISEASE [None]
  - SICK SINUS SYNDROME [None]
  - THYROID FUNCTION TEST ABNORMAL [None]
  - VENTRICULAR EXTRASYSTOLES [None]
  - VISION BLURRED [None]
  - HAEMATEMESIS [None]
  - PNEUMONITIS [None]
  - AORTIC VALVE INCOMPETENCE [None]
  - ADVERSE DRUG REACTION [None]
  - BLINDNESS UNILATERAL [None]
  - BLOOD PRESSURE DIASTOLIC INCREASED [None]
  - FATIGUE [None]
  - HAEMOGLOBIN DECREASED [None]
  - HEART RATE DECREASED [None]
  - HEART RATE IRREGULAR [None]
  - INFLAMMATION [None]
  - JOINT WARMTH [None]
  - NAUSEA [None]
  - RESPIRATORY TRACT CONGESTION [None]
  - VENTRICULAR HYPOKINESIA [None]
  - RESPIRATORY FAILURE [None]
  - TRICUSPID VALVE INCOMPETENCE [None]
  - BLOOD CREATINE PHOSPHOKINASE MB DECREASED [None]
  - BLOOD CREATINE PHOSPHOKINASE ABNORMAL [None]
  - BRADYCARDIA [None]
  - EYE OEDEMA [None]
  - HAEMATOCRIT DECREASED [None]
  - PNEUMOCONIOSIS [None]
  - RETINAL DETACHMENT [None]
  - ECCHYMOSIS [None]
  - MITRAL VALVE INCOMPETENCE [None]
  - CHRONIC OBSTRUCTIVE PULMONARY DISEASE [None]
  - CORNEAL DEGENERATION [None]
  - LEFT ATRIAL DILATATION [None]
  - LUNG INFILTRATION [None]
  - SILICOSIS [None]
  - THROMBOPHLEBITIS SUPERFICIAL [None]
  - ULCERATIVE KERATITIS [None]
  - VISUAL ACUITY REDUCED [None]
  - VITREOUS FLOATERS [None]
  - CORONARY ARTERY BYPASS [None]
  - ISCHAEMIC CARDIOMYOPATHY [None]
  - CHEST X-RAY ABNORMAL [None]
  - ELECTROCARDIOGRAM ST-T CHANGE [None]
  - GLAUCOMA [None]
  - INTRAOCULAR PRESSURE INCREASED [None]
  - LEUKOCYTOSIS [None]
  - ORTHOPNOEA [None]
  - OROPHARYNGEAL PAIN [None]
  - RALES [None]
  - RHONCHI [None]
  - HAEMATOMA [None]
  - CHEST PAIN [None]
  - WHEEZING [None]
  - ATRIAL FIBRILLATION [None]
  - ABNORMAL SENSATION IN EYE [None]
  - AORTIC VALVE CALCIFICATION [None]
  - BURSITIS [None]
  - CARDIOMEGALY [None]
  - HYPOKALAEMIA [None]
  - HYPOTENSION [None]
  - ILL-DEFINED DISORDER [None]
  - ARRHYTHMIA [None]
  - HAEMOPTYSIS [None]
  - MYOCARDIAL INFARCTION [None]
  - HYPERTENSION [None]
  - PULMONARY HYPERTENSION [None]
  - ARTHRALGIA [None]
  - BRONCHITIS [None]
  - CARBON DIOXIDE DECREASED [None]
  - CARDIAC MURMUR [None]
  - DILATATION VENTRICULAR [None]
  - DYSPNOEA EXERTIONAL [None]
  - HEADACHE [None]
  - JOINT SWELLING [None]
  - OEDEMA PERIPHERAL [None]
  - VASCULAR PSEUDOANEURYSM [None]
  - CHEST DISCOMFORT [None]
  - PAIN IN EXTREMITY [None]
